FAERS Safety Report 9619977 (Version 3)
Quarter: 2013Q4

REPORT INFORMATION
  Report Type: Spontaneous
  Country: US (occurrence: US)
  Receive Date: 20131014
  Receipt Date: 20131028
  Transmission Date: 20140711
  Serious: Yes (Other)
  Sender: FDA-Public Use
  Company Number: US-PFIZER INC-2013289937

PATIENT
  Age: 55 Year
  Sex: Female
  Weight: 54.4 kg

DRUGS (5)
  1. ESTROGENS CONJUGATED [Suspect]
     Dosage: UNK
  2. MEDROXYPROGESTERONE ACETATE [Suspect]
     Dosage: UNK
  3. DILTIAZEM [Concomitant]
     Indication: HYPERTENSION
     Dosage: 90 MG, 2X/DAY
     Dates: start: 1993
  4. BENICAR [Concomitant]
     Indication: HYPERTENSION
     Dosage: 20 MG, 1X/DAY
     Dates: start: 2005
  5. PRAVASTATIN [Concomitant]
     Indication: BLOOD CHOLESTEROL ABNORMAL
     Dosage: 40 MG, 1X/DAY
     Dates: start: 2007

REACTIONS (2)
  - Blood pressure inadequately controlled [Unknown]
  - Blood pressure decreased [Recovered/Resolved]
